FAERS Safety Report 14057931 (Version 1)
Quarter: 2017Q4

REPORT INFORMATION
  Report Type: Spontaneous
  Country: FR (occurrence: FR)
  Receive Date: 20171006
  Receipt Date: 20171006
  Transmission Date: 20180321
  Serious: Yes (Other)
  Sender: FDA-Public Use
  Company Number: FR-JNJFOC-20171004536

PATIENT
  Age: 69 Year
  Sex: Female

DRUGS (1)
  1. IMBRUVICA [Suspect]
     Active Substance: IBRUTINIB
     Indication: PRODUCT USED FOR UNKNOWN INDICATION
     Route: 048

REACTIONS (5)
  - Hypoacusis [Not Recovered/Not Resolved]
  - Dehydration [Not Recovered/Not Resolved]
  - Gait inability [Not Recovered/Not Resolved]
  - Reading disorder [Not Recovered/Not Resolved]
  - Sinus congestion [Not Recovered/Not Resolved]
